FAERS Safety Report 8991988 (Version 1)
Quarter: 2012Q4

REPORT INFORMATION
  Report Type: 
  Country: JP (occurrence: JP)
  Receive Date: 20121231
  Receipt Date: 20121231
  Transmission Date: 20130627
  Serious: Yes (Other)
  Sender: FDA-Public Use
  Company Number: JP-ASTELLAS-2012JP003339

PATIENT

DRUGS (2)
  1. PROGRAF [Suspect]
     Indication: COLITIS ULCERATIVE
     Dosage: 2 mg, bid
     Route: 048
  2. 5 ASA [Concomitant]
     Indication: COLITIS ULCERATIVE
     Route: 065

REACTIONS (2)
  - Drug ineffective [Unknown]
  - Colitis ulcerative [Unknown]
